FAERS Safety Report 12192288 (Version 2)
Quarter: 2016Q4

REPORT INFORMATION
  Report Type: Spontaneous
  Country: DE (occurrence: DE)
  Receive Date: 20160318
  Receipt Date: 20161021
  Transmission Date: 20170207
  Serious: Yes (Death, Hospitalization, Other)
  Sender: FDA-Public Use
  Company Number: DE-AMGEN-DEUSP2016032794

PATIENT
  Age: 18 Year
  Sex: Female
  Weight: 54 kg

DRUGS (9)
  1. DEXAMETHASONE. [Concomitant]
     Active Substance: DEXAMETHASONE
     Dosage: UNK
     Dates: start: 20151216
  2. L-ASPARAGINASE [Concomitant]
     Active Substance: ASPARAGINASE
     Route: 030
  3. ARA CELL [Concomitant]
     Active Substance: CYTARABINE
  4. CYTARABINE. [Concomitant]
     Active Substance: CYTARABINE
  5. DAUNORUBICIN [Concomitant]
     Active Substance: DAUNORUBICIN
     Route: 042
  6. CYTOXAN [Concomitant]
     Active Substance: CYCLOPHOSPHAMIDE
     Route: 042
  7. POLYETHYLENE GLYCOL [Concomitant]
     Active Substance: POLYETHYLENE GLYCOLS
     Route: 030
  8. BLINCYTO [Suspect]
     Active Substance: BLINATUMOMAB
     Indication: ACUTE LYMPHOCYTIC LEUKAEMIA RECURRENT
     Dosage: 28 MCG, QD
     Route: 041
     Dates: start: 20160202, end: 20160302
  9. PREDNISONE. [Concomitant]
     Active Substance: PREDNISONE
     Route: 048

REACTIONS (11)
  - Disease progression [Fatal]
  - Multiple organ dysfunction syndrome [Fatal]
  - Amaurosis [Recovered/Resolved]
  - Seizure [Recovered/Resolved]
  - Papilloedema [Recovered/Resolved]
  - Pericardial effusion [Unknown]
  - Subileus [Unknown]
  - Sepsis [Unknown]
  - Pericarditis [Unknown]
  - Myocarditis [Unknown]
  - Chest pain [Unknown]

NARRATIVE: CASE EVENT DATE: 201602
